FAERS Safety Report 12080798 (Version 1)
Quarter: 2016Q1

REPORT INFORMATION
  Report Type: Spontaneous
  Country: AU (occurrence: AU)
  Receive Date: 20160216
  Receipt Date: 20160216
  Transmission Date: 20160526
  Serious: Yes (Disabling)
  Sender: FDA-Public Use
  Company Number: AU-PFIZER INC-2016027437

PATIENT
  Age: 63 Year
  Sex: Female
  Weight: 68 kg

DRUGS (7)
  1. DOSTINEX [Suspect]
     Active Substance: CABERGOLINE
     Dosage: 1/8TH (AN EIGHTH) OF THE TABLET, WEEKLY
     Route: 048
  2. TELSARTAN [Concomitant]
     Dosage: 40 MG, DAILY
  3. DOSTINEX [Suspect]
     Active Substance: CABERGOLINE
     Indication: PITUITARY TUMOUR BENIGN
     Dosage: HALF A TABLET WEEKLY
     Route: 048
  4. CORTATE /00014602/ [Concomitant]
     Dosage: 1 TABLET IN THE MORNING
     Route: 048
  5. DOSTINEX [Suspect]
     Active Substance: CABERGOLINE
     Indication: HYPERPROLACTINAEMIA
     Dosage: 1 TABLET WEEKLY
     Route: 048
  6. DOSTINEX [Suspect]
     Active Substance: CABERGOLINE
     Dosage: 1/4 TABLET WEEKLY
     Route: 048
  7. EUTROXSIG [Concomitant]
     Active Substance: LEVOTHYROXINE SODIUM
     Dosage: 125 UG IN THE MORNING
     Route: 048

REACTIONS (15)
  - Lethargy [Not Recovered/Not Resolved]
  - Hallucination [Not Recovered/Not Resolved]
  - Restlessness [Not Recovered/Not Resolved]
  - Palpitations [Not Recovered/Not Resolved]
  - Headache [Not Recovered/Not Resolved]
  - Nightmare [Not Recovered/Not Resolved]
  - Hyperhidrosis [Not Recovered/Not Resolved]
  - Tinnitus [Not Recovered/Not Resolved]
  - Irritability [Not Recovered/Not Resolved]
  - Malaise [Not Recovered/Not Resolved]
  - Intentional product use issue [Not Recovered/Not Resolved]
  - Photopsia [Not Recovered/Not Resolved]
  - Tremor [Not Recovered/Not Resolved]
  - Mental impairment [Not Recovered/Not Resolved]
  - Pollakiuria [Not Recovered/Not Resolved]
